FAERS Safety Report 5218321-1 (Version None)
Quarter: 2006Q4

REPORT INFORMATION
  Report Type: 
  Country: None (occurrence: None)
  Receive Date: 20061130
  Receipt Date: 20060320
  Transmission Date: 20070319
  Serious: Yes (Other)
  Sender: FDA-Public Use
  Company Number: US200603001871

PATIENT
  Sex: Male
  Weight: 131.5 kg

DRUGS (4)
  1. ZYPREXA [Suspect]
     Dosage: 7.5 MG,; 10 MG, 5MG, 10MG
     Dates: start: 20000324, end: 20000417
  2. ZYPREXA [Suspect]
     Dosage: 7.5 MG,; 10 MG, 5MG, 10MG
     Dates: start: 20000417, end: 20000811
  3. ZYPREXA [Suspect]
     Dosage: 7.5 MG,; 10 MG, 5MG, 10MG
     Dates: start: 20001006, end: 20011130
  4. ZYPREXA [Suspect]
     Dosage: 7.5 MG,; 10 MG, 5MG, 10MG
     Dates: start: 20010323

REACTIONS (6)
  - ARRHYTHMIA [None]
  - ASTHENIA [None]
  - DIABETES MELLITUS [None]
  - HYPERGLYCAEMIA [None]
  - HYPOGLYCAEMIA [None]
  - WEIGHT INCREASED [None]
